FAERS Safety Report 21900621 (Version 1)
Quarter: 2023Q1

REPORT INFORMATION
  Report Type: Report from Study
  Country: US (occurrence: US)
  Receive Date: 20230123
  Receipt Date: 20230123
  Transmission Date: 20230418
  Serious: Yes (Other)
  Sender: FDA-Public Use
  Company Number: US-HLS-202300024

PATIENT
  Sex: Female
  Weight: 82 kg

DRUGS (3)
  1. CLOZARIL [Suspect]
     Active Substance: CLOZAPINE
     Indication: Schizophrenia
     Dosage: 50 MG QHS
     Route: 065
     Dates: start: 20220920
  2. CLOZARIL [Suspect]
     Active Substance: CLOZAPINE
     Indication: Schizophrenia
     Dosage: 75 MG QHS
     Route: 065
  3. CLOZARIL [Suspect]
     Active Substance: CLOZAPINE
     Indication: Schizophrenia
     Dosage: 75 MG QHS
     Route: 065
     Dates: end: 20200920

REACTIONS (3)
  - Depersonalisation/derealisation disorder [Recovered/Resolved]
  - Psychotic symptom [Recovered/Resolved]
  - Insomnia [Recovered/Resolved]
